FAERS Safety Report 6889019-9 (Version None)
Quarter: 2010Q3

REPORT INFORMATION
  Report Type: 
  Country: None (occurrence: None)
  Receive Date: 20100730
  Receipt Date: 20071214
  Transmission Date: 20110219
  Serious: Yes (Other)
  Sender: FDA-Public Use
  Company Number: US-PFIZER INC-2007106075

PATIENT
  Sex: Female
  Weight: 71.67 kg

DRUGS (3)
  1. LIPITOR [Suspect]
     Indication: BLOOD CHOLESTEROL INCREASED
     Route: 048
     Dates: start: 20071201
  2. SYNTHROID [Concomitant]
     Dosage: DAILY
  3. HYDROCHLOROTHIAZIDE [Concomitant]
     Dosage: DAILY

REACTIONS (1)
  - HYPERTENSION [None]
